FAERS Safety Report 23364934 (Version 1)
Quarter: 2024Q1

REPORT INFORMATION
  Report Type: Spontaneous
  Country: US (occurrence: US)
  Receive Date: 20240104
  Receipt Date: 20240104
  Transmission Date: 20240409
  Serious: Yes (Other)
  Sender: FDA-Public Use
  Company Number: US-009507513-2401USA000510

PATIENT
  Age: 55 Year
  Sex: Male

DRUGS (2)
  1. KEYTRUDA [Suspect]
     Active Substance: PEMBROLIZUMAB
     Indication: Thyroid cancer
     Dosage: UNK, EVERY 6 WEEKS
     Dates: start: 20230907
  2. CABOMETYX [Suspect]
     Active Substance: CABOZANTINIB S-MALATE
     Indication: Thyroid cancer
     Dosage: 40 MILLIGRAM, QD
     Route: 048
     Dates: start: 20230907

REACTIONS (5)
  - Radiotherapy [Unknown]
  - Rash [Unknown]
  - Diarrhoea [Recovered/Resolved]
  - Stomatitis [Unknown]
  - Product use issue [Unknown]

NARRATIVE: CASE EVENT DATE: 20230101
